FAERS Safety Report 17465857 (Version 2)
Quarter: 2020Q1

REPORT INFORMATION
  Report Type: Report from Study
  Country: US (occurrence: US)
  Receive Date: 20200227
  Receipt Date: 20200325
  Transmission Date: 20200409
  Serious: No
  Sender: FDA-Public Use
  Company Number: NVSC2020US055257

PATIENT
  Sex: Male

DRUGS (3)
  1. PROMACTA [Suspect]
     Active Substance: ELTROMBOPAG OLAMINE
     Dosage: 50 MG, QD
     Route: 048
  2. PROMACTA [Suspect]
     Active Substance: ELTROMBOPAG OLAMINE
     Dosage: 25 MG, QD
     Route: 048
  3. PROMACTA [Suspect]
     Active Substance: ELTROMBOPAG OLAMINE
     Route: 048

REACTIONS (3)
  - Urinary tract infection [Recovering/Resolving]
  - Diarrhoea [Recovered/Resolved]
  - Wrong technique in product usage process [Not Recovered/Not Resolved]
